FAERS Safety Report 6869222-4 (Version None)
Quarter: 2010Q3

REPORT INFORMATION
  Report Type: 
  Country: None (occurrence: None)
  Receive Date: 20100722
  Receipt Date: 20081126
  Transmission Date: 20110219
  Serious: No
  Sender: FDA-Public Use
  Company Number: US-PFIZER INC-2008057322

PATIENT
  Sex: Male
  Weight: 87.09 kg

DRUGS (1)
  1. CHANTIX [Suspect]
     Indication: SMOKING CESSATION THERAPY
     Route: 048
     Dates: start: 20080201, end: 20080301

REACTIONS (4)
  - ABNORMAL DREAMS [None]
  - INSOMNIA [None]
  - MOOD ALTERED [None]
  - NIGHTMARE [None]
